FAERS Safety Report 9701660 (Version 1)
Quarter: 2013Q4

REPORT INFORMATION
  Report Type: Spontaneous
  Country: US (occurrence: US)
  Receive Date: 20131119
  Receipt Date: 20131119
  Transmission Date: 20140711
  Serious: Yes (Other)
  Sender: FDA-Public Use
  Company Number: US-ORACLE-2012S1000004

PATIENT
  Age: 62 Year
  Sex: Male
  Weight: 111.59 kg

DRUGS (13)
  1. KRYSTEXXA INJECTION [Suspect]
     Indication: GOUT
     Route: 042
     Dates: start: 20110121, end: 201109
  2. KRYSTEXXA INJECTION [Suspect]
     Indication: GOUT
     Route: 042
     Dates: start: 201109, end: 201111
  3. KRYSTEXXA INJECTION [Suspect]
     Indication: GOUT
     Route: 042
     Dates: start: 20111223, end: 20111223
  4. KRYSTEXXA INJECTION [Suspect]
     Indication: GOUT
     Route: 042
     Dates: start: 20120127, end: 20120127
  5. NEXIUM /01479303/ [Concomitant]
     Indication: PRODUCT USED FOR UNKNOWN INDICATION
  6. OXYCODONE [Concomitant]
     Indication: PRODUCT USED FOR UNKNOWN INDICATION
  7. PROGRAF [Concomitant]
     Indication: PRODUCT USED FOR UNKNOWN INDICATION
  8. URSODIOL [Concomitant]
     Indication: PRODUCT USED FOR UNKNOWN INDICATION
  9. DOXAZOSIN [Concomitant]
     Indication: PRODUCT USED FOR UNKNOWN INDICATION
  10. INSULIN [Concomitant]
     Indication: PRODUCT USED FOR UNKNOWN INDICATION
  11. CARVEDILOL [Concomitant]
     Indication: PRODUCT USED FOR UNKNOWN INDICATION
  12. MAGNESIUM [Concomitant]
     Indication: PRODUCT USED FOR UNKNOWN INDICATION
  13. CALCIUM [Concomitant]
     Indication: PRODUCT USED FOR UNKNOWN INDICATION

REACTIONS (3)
  - Infusion related reaction [Recovered/Resolved]
  - Therapeutic response decreased [Unknown]
  - Dyspepsia [Recovered/Resolved]
